FAERS Safety Report 4350985-7 (Version None)
Quarter: 2004Q2

REPORT INFORMATION
  Report Type: 
  Country: None (occurrence: None)
  Receive Date: 20040427
  Receipt Date: 20040413
  Transmission Date: 20050107
  Serious: Yes (Disabling)
  Sender: FDA-Public Use
  Company Number: 2004CG00700

PATIENT
  Age: 69 Year
  Sex: Male

DRUGS (3)
  1. XYLOCAINE [Suspect]
     Indication: LOCAL ANAESTHESIA
     Dates: start: 20031126, end: 20031126
  2. BSS [Suspect]
     Dates: start: 20031126, end: 20031126
  3. BETADINE [Suspect]
     Dates: start: 20031126, end: 20031126

REACTIONS (6)
  - ENDOPHTHALMITIS [None]
  - OFF LABEL USE [None]
  - POST PROCEDURAL COMPLICATION [None]
  - POSTOPERATIVE INFECTION [None]
  - STAPHYLOCOCCAL INFECTION [None]
  - UVEITIS [None]
